FAERS Safety Report 9604912 (Version 1)
Quarter: 2013Q4

REPORT INFORMATION
  Report Type: Spontaneous
  Country: US (occurrence: US)
  Receive Date: 20131008
  Receipt Date: 20131008
  Transmission Date: 20140711
  Serious: No
  Sender: FDA-Public Use
  Company Number: US-009507513-1310USA001986

PATIENT
  Sex: Female

DRUGS (2)
  1. MIRALAX [Suspect]
     Indication: PRODUCT USED FOR UNKNOWN INDICATION
     Dosage: 5.6 UNK, UNKNOWN
     Route: 048
  2. MIRALAX [Suspect]
     Dosage: 34 G, ONCE
     Route: 048
     Dates: start: 20130925

REACTIONS (3)
  - Overdose [Unknown]
  - Incorrect route of drug administration [Unknown]
  - Underdose [Unknown]
